FAERS Safety Report 7418337-0 (Version None)
Quarter: 2011Q2

REPORT INFORMATION
  Report Type: 
  Country: None (occurrence: None)
  Receive Date: 20110415
  Receipt Date: 20110408
  Transmission Date: 20111010
  Serious: Yes (Hospitalization)
  Sender: FDA-Public Use
  Company Number: A0921127A

PATIENT
  Sex: Female
  Weight: 67 kg

DRUGS (2)
  1. LAPATINIB [Suspect]
     Dosage: 1250MG PER DAY
     Route: 048
     Dates: start: 20110125
  2. CAPECITABINE [Suspect]
     Dosage: 2000MGM2 TWICE PER DAY
     Route: 048
     Dates: start: 20110125

REACTIONS (1)
  - DEHYDRATION [None]
